FAERS Safety Report 11252548 (Version 1)
Quarter: 2015Q3

REPORT INFORMATION
  Report Type: Spontaneous
  Country: US (occurrence: None)
  Receive Date: 20150707
  Receipt Date: 20150707
  Transmission Date: 20151125
  Serious: Yes (Hospitalization)
  Sender: FDA-Public Use
  Company Number: None

PATIENT
  Age: 48 Year
  Sex: Male
  Weight: 63.5 kg

DRUGS (1)
  1. ASPIRIN. [Suspect]
     Active Substance: ASPIRIN
     Indication: CORONARY ARTERY DISEASE
     Route: 048
     Dates: start: 20150518

REACTIONS (4)
  - Haemoglobin decreased [None]
  - Gastrointestinal haemorrhage [None]
  - Gastric haemorrhage [None]
  - Gastric varices [None]

NARRATIVE: CASE EVENT DATE: 20150609
